FAERS Safety Report 7347605-6 (Version None)
Quarter: 2011Q1

REPORT INFORMATION
  Report Type: 
  Country: None (occurrence: None)
  Receive Date: 20110210
  Receipt Date: 20101112
  Transmission Date: 20110831
  Serious: Yes (Hospitalization)
  Sender: FDA-Public Use
  Company Number: 2010026900

PATIENT
  Age: 69 Year
  Sex: Female

DRUGS (16)
  1. ATIVAN [Concomitant]
  2. COUMADIN [Concomitant]
  3. SPIRIVA [Concomitant]
  4. BETAPACE [Concomitant]
  5. LASIX [Concomitant]
  6. FORADIL [Concomitant]
  7. BUDESOMIDE (BUDESONIDE) [Concomitant]
  8. HIZENTRA [Suspect]
     Indication: IMMUNODEFICIENCY COMMON VARIABLE
     Dosage: 8 GM (40 ML) WEEKLY OVER 1-2 HOURS USING 2-3 SITES SUBCUTANEOUS
     Route: 058
  9. ALBUTEROL [Concomitant]
  10. PRILOSEC (OMEPRAZOLE) [Concomitant]
  11. NEURONTIN [Concomitant]
  12. NASONEX [Concomitant]
  13. SIMVASTATIN [Concomitant]
  14. PROZAC [Concomitant]
  15. ASMANEX TWISTHALER [Concomitant]
  16. SYNTHROID [Concomitant]

REACTIONS (1)
  - CEREBROVASCULAR ACCIDENT [None]
